FAERS Safety Report 18632715 (Version 2)
Quarter: 2021Q1

REPORT INFORMATION
  Report Type: Report from Study
  Country: None (occurrence: CO)
  Receive Date: 20201218
  Receipt Date: 20210121
  Transmission Date: 20210419
  Serious: Yes (Hospitalization, Other)
  Sender: FDA-Public Use
  Company Number: CO-ABBVIE-20K-036-3296521-00

PATIENT
  Age: 41 Year
  Sex: Male
  Weight: 90 kg

DRUGS (1)
  1. HUMIRA [Suspect]
     Active Substance: ADALIMUMAB
     Indication: HIDRADENITIS
     Route: 058
     Dates: start: 20190207

REACTIONS (9)
  - Impaired healing [Recovering/Resolving]
  - Fistula [Unknown]
  - Abscess limb [Not Recovered/Not Resolved]
  - Hidradenitis [Recovering/Resolving]
  - Skin injury [Recovering/Resolving]
  - Groin abscess [Recovered/Resolved]
  - Groin abscess [Recovering/Resolving]
  - Perineal abscess [Not Recovered/Not Resolved]
  - Pain [Unknown]

NARRATIVE: CASE EVENT DATE: 2020
